FAERS Safety Report 8409107-5 (Version None)
Quarter: 2012Q2

REPORT INFORMATION
  Report Type: 
  Country: None (occurrence: None)
  Receive Date: 20120604
  Receipt Date: 20120530
  Transmission Date: 20120825
  Serious: Yes (Other)
  Sender: FDA-Public Use
  Company Number: BR-PFIZER INC-2012130928

PATIENT
  Age: 69 Year
  Sex: Female

DRUGS (4)
  1. XALATAN [Suspect]
     Indication: GLAUCOMA
     Dosage: 1.5 UG (ONE DROP IN THE LEFT EYE), 1X/DAY
     Route: 047
     Dates: start: 20090101, end: 20110101
  2. AAS INFANTIL [Concomitant]
     Dosage: UNK
     Dates: start: 20020101
  3. DIOVAN HCT [Concomitant]
     Dosage: 160/12.5
  4. SIMVASTATIN [Concomitant]

REACTIONS (1)
  - HERPES ZOSTER OPHTHALMIC [None]
